FAERS Safety Report 9846197 (Version 1)
Quarter: 2013Q4

REPORT INFORMATION
  Report Type: Spontaneous
  Country: US (occurrence: None)
  Receive Date: 20131223
  Receipt Date: 20131223
  Transmission Date: 20140711
  Serious: Yes (Other)
  Sender: FDA-Public Use
  Company Number: CABO-13003600

PATIENT
  Age: 52 Year
  Sex: Male
  Weight: 87.9 kg

DRUGS (1)
  1. COMETRIQ [Suspect]
     Indication: PROSTATE CANCER
     Route: 048
     Dates: start: 20130910, end: 2013

REACTIONS (2)
  - General physical health deterioration [None]
  - Off label use [None]
